FAERS Safety Report 16756784 (Version 1)
Quarter: 2019Q3

REPORT INFORMATION
  Report Type: Spontaneous
  Country: US (occurrence: US)
  Receive Date: 20190829
  Receipt Date: 20190829
  Transmission Date: 20191005
  Serious: No
  Sender: FDA-Public Use
  Company Number: US-AKRON, INC.-2073843

PATIENT
  Sex: Female

DRUGS (1)
  1. LACTULOSE SOLUTION, USP [Suspect]
     Active Substance: LACTULOSE
     Route: 048

REACTIONS (1)
  - Drug ineffective [Unknown]
